FAERS Safety Report 22621215 (Version 1)
Quarter: 2023Q2

REPORT INFORMATION
  Report Type: Spontaneous
  Country: US (occurrence: US)
  Receive Date: 20230620
  Receipt Date: 20230620
  Transmission Date: 20230722
  Serious: Yes (Hospitalization, Other)
  Sender: FDA-Public Use
  Company Number: US-UCBSA-2023024954

PATIENT
  Sex: Female
  Weight: 71.3 kg

DRUGS (2)
  1. CIMZIA [Suspect]
     Active Substance: CERTOLIZUMAB PEGOL
     Indication: Raynaud^s phenomenon
     Dosage: 400 MILLIGRAM
     Route: 058
     Dates: start: 20210922
  2. CIMZIA [Suspect]
     Active Substance: CERTOLIZUMAB PEGOL
     Indication: Off label use

REACTIONS (3)
  - Spinal operation [Unknown]
  - Medical device removal [Unknown]
  - Spinal laminectomy [Unknown]
